FAERS Safety Report 7920909-1 (Version None)
Quarter: 2011Q4

REPORT INFORMATION
  Report Type: 
  Country: None (occurrence: None)
  Receive Date: 20111117
  Receipt Date: 20111003
  Transmission Date: 20120403
  Serious: No
  Sender: FDA-Public Use
  Company Number: US-GLAXOSMITHKLINE-A0947597A

PATIENT
  Age: 70 Year
  Sex: Male

DRUGS (3)
  1. QUINAPRIL HCL AND HYDROCHLOROTHIAZIDE [Concomitant]
  2. ANTIHYPERTENSIVE [Concomitant]
     Indication: BLOOD PRESSURE
  3. VOTRIENT [Suspect]
     Indication: RENAL CANCER
     Dosage: 800MG PER DAY
     Route: 065
     Dates: start: 20110801

REACTIONS (10)
  - HEADACHE [None]
  - FATIGUE [None]
  - HYPERTENSION [None]
  - AGEUSIA [None]
  - DYSGEUSIA [None]
  - ABDOMINAL DISCOMFORT [None]
  - DIARRHOEA [None]
  - MUSCULAR WEAKNESS [None]
  - APHONIA [None]
  - FEELING ABNORMAL [None]
